FAERS Safety Report 17105495 (Version 1)
Quarter: 2019Q4

REPORT INFORMATION
  Report Type: Spontaneous
  Country: US (occurrence: US)
  Receive Date: 20191203
  Receipt Date: 20191203
  Transmission Date: 20200122
  Serious: Yes (Other)
  Sender: FDA-Public Use
  Company Number: US-BRISTOL-MYERS SQUIBB COMPANY-BMS-2019-114360

PATIENT
  Age: 85 Year
  Sex: Female

DRUGS (1)
  1. ELIQUIS [Suspect]
     Active Substance: APIXABAN
     Indication: CEREBROVASCULAR ACCIDENT PROPHYLAXIS
     Dosage: ONCE A DAY
     Route: 048
     Dates: start: 201908

REACTIONS (6)
  - Skin lesion [Unknown]
  - Syncope [Unknown]
  - Dizziness [Unknown]
  - Inflammation [Unknown]
  - Off label use [Unknown]
  - Asthenia [Unknown]
